FAERS Safety Report 26025268 (Version 2)
Quarter: 2025Q4

REPORT INFORMATION
  Report Type: Report from Study
  Country: US (occurrence: US)
  Receive Date: 20251111
  Receipt Date: 20251120
  Transmission Date: 20260117
  Serious: Yes (Death)
  Sender: TEVA
  Company Number: US-TEVA-VS-3389442

PATIENT
  Age: 50 Year
  Sex: Male

DRUGS (5)
  1. CARBOPLATIN [Suspect]
     Active Substance: CARBOPLATIN
     Indication: Conjunctival melanoma
     Route: 065
  2. IPILIMUMAB [Suspect]
     Active Substance: IPILIMUMAB
     Indication: Conjunctival melanoma
     Dosage: 4 DOSES
     Route: 065
  3. PEMBROLIZUMAB [Suspect]
     Active Substance: PEMBROLIZUMAB
     Indication: Conjunctival melanoma
     Route: 065
  4. IODINE [Suspect]
     Active Substance: IODINE
     Indication: Conjunctival melanoma
     Route: 065
  5. PACLITAXEL [Suspect]
     Active Substance: PACLITAXEL
     Indication: Conjunctival melanoma
     Route: 065

REACTIONS (1)
  - Drug ineffective [Fatal]
